FAERS Safety Report 25557999 (Version 2)
Quarter: 2025Q3

REPORT INFORMATION
  Report Type: Spontaneous
  Country: JP (occurrence: JP)
  Receive Date: 20250715
  Receipt Date: 20250825
  Transmission Date: 20251020
  Serious: No
  Sender: DAIICHI
  Company Number: JP-DSJP-DS-2025-152566-JP

PATIENT
  Age: 73 Year
  Sex: Male
  Weight: 54 kg

DRUGS (8)
  1. ENHERTU [Suspect]
     Active Substance: FAM-TRASTUZUMAB DERUXTECAN-NXKI
     Indication: HER2 mutant non-small cell lung cancer
     Dosage: 5.4 MG/KG, ONCE EVERY 3 WK
     Route: 041
     Dates: start: 20250409, end: 20250409
  2. ENHERTU [Suspect]
     Active Substance: FAM-TRASTUZUMAB DERUXTECAN-NXKI
     Dosage: 5.4 MG/KG, ONCE EVERY 3 WK
     Route: 041
     Dates: start: 20250428, end: 20250428
  3. VONOPRAZAN FUMARATE [Suspect]
     Active Substance: VONOPRAZAN FUMARATE
     Indication: Product used for unknown indication
     Route: 048
     Dates: start: 202404, end: 20250613
  4. KEYTRUDA [Suspect]
     Active Substance: PEMBROLIZUMAB
     Indication: HER2 mutant non-small cell lung cancer
     Dosage: 200 MG, ONCE EVERY 3 WK
     Route: 041
     Dates: start: 20240921, end: 20250226
  5. DENOSUMAB [Concomitant]
     Active Substance: DENOSUMAB
     Indication: Product used for unknown indication
     Dosage: 120 MG, ONCE EVERY 4 WK
     Route: 058
     Dates: start: 20240920
  6. CALCIUM CARBONATE\CHOLECALCIFEROL\MAGNESIUM CARBONATE [Concomitant]
     Active Substance: CALCIUM CARBONATE\CHOLECALCIFEROL\MAGNESIUM CARBONATE
     Indication: Product used for unknown indication
     Dosage: UNK UNK, BID
     Route: 048
     Dates: start: 20240920
  7. MAGNESIUM OXIDE [Concomitant]
     Active Substance: MAGNESIUM OXIDE
     Indication: Product used for unknown indication
     Dosage: 330 MG, BID
     Route: 048
     Dates: start: 202404
  8. ALLOPURINOL [Concomitant]
     Active Substance: ALLOPURINOL
     Indication: Product used for unknown indication
     Dosage: 100 MG, BID
     Route: 048
     Dates: start: 202404

REACTIONS (2)
  - Blood creatinine increased [Not Recovered/Not Resolved]
  - Pyrexia [Unknown]

NARRATIVE: CASE EVENT DATE: 20250603
